FAERS Safety Report 4463684-8 (Version None)
Quarter: 2004Q3

REPORT INFORMATION
  Report Type: 
  Country: None (occurrence: None)
  Receive Date: 20040929
  Receipt Date: 20040917
  Transmission Date: 20050211
  Serious: Yes (Hospitalization)
  Sender: FDA-Public Use
  Company Number: 2004234767IE

PATIENT
  Sex: 0

DRUGS (1)
  1. ZYVOX [Suspect]
     Dosage: 600 MG, BID, ORAL
     Route: 048

REACTIONS (3)
  - DEHYDRATION [None]
  - LIVER FUNCTION TEST ABNORMAL [None]
  - NAUSEA [None]
